FAERS Safety Report 19435861 (Version 1)
Quarter: 2021Q2

REPORT INFORMATION
  Report Type: Report from Study
  Country: IL (occurrence: IL)
  Receive Date: 20210618
  Receipt Date: 20210618
  Transmission Date: 20210717
  Serious: Yes (Life-Threatening, Hospitalization)
  Sender: FDA-Public Use
  Company Number: IL-CELGENEUS-ISR-20210604480

PATIENT
  Age: 43 Year
  Sex: Male
  Weight: 72.9 kg

DRUGS (7)
  1. DEXAMETHASONE. [Suspect]
     Active Substance: DEXAMETHASONE
     Indication: PLASMA CELL MYELOMA
     Dosage: 40 MILLIGRAM
     Route: 048
     Dates: start: 20190219, end: 20190508
  2. ACID ACETYLSALICYLIC [Concomitant]
     Active Substance: ASPIRIN
     Indication: PROPHYLAXIS
     Dosage: 100 MILLIGRAM
     Route: 065
     Dates: start: 20190219
  3. PROCTO?GLYVENOL [Concomitant]
     Active Substance: LIDOCAINE HYDROCHLORIDE\TRIBENOSIDE
     Indication: PRODUCT USED FOR UNKNOWN INDICATION
     Route: 061
     Dates: start: 20190320, end: 20190419
  4. POMALIDOMIDE [Suspect]
     Active Substance: POMALIDOMIDE
     Indication: PLASMA CELL MYELOMA
     Dosage: 4 MILLIGRAM
     Route: 048
     Dates: start: 20190219, end: 20190507
  5. LAMIVUDINE. [Concomitant]
     Active Substance: LAMIVUDINE
     Indication: PROPHYLAXIS
     Dosage: 100 MILLIGRAM
     Route: 048
     Dates: start: 2018
  6. ACYCLOVIR. [Concomitant]
     Active Substance: ACYCLOVIR
     Indication: PROPHYLAXIS
     Dosage: 400 MILLIGRAM
     Route: 065
     Dates: start: 2018
  7. PERCOCET [Concomitant]
     Active Substance: ACETAMINOPHEN\OXYCODONE HYDROCHLORIDE
     Indication: ARTHRALGIA
     Dosage: 40 MILLIGRAM
     Route: 065
     Dates: start: 20190508

REACTIONS (1)
  - Atrioventricular block complete [Recovered/Resolved with Sequelae]

NARRATIVE: CASE EVENT DATE: 20190518
